FAERS Safety Report 19126798 (Version 1)
Quarter: 2021Q2

REPORT INFORMATION
  Report Type: Spontaneous
  Country: US (occurrence: US)
  Receive Date: 20210413
  Receipt Date: 20210413
  Transmission Date: 20210717
  Serious: Yes (Disabling)
  Sender: FDA-Public Use
  Company Number: None

PATIENT
  Age: 73 Year
  Sex: Female
  Weight: 83.25 kg

DRUGS (11)
  1. CHOLESTYRAMINE. [Suspect]
     Active Substance: CHOLESTYRAMINE
     Indication: BLOOD CHOLESTEROL
     Dosage: ?          QUANTITY:1 PACKET;?
     Route: 048
     Dates: start: 19881201, end: 20210201
  2. COD LIVER OIL [Concomitant]
     Active Substance: COD LIVER OIL
  3. QUERCETIN [Concomitant]
     Active Substance: QUERCETIN
  4. MULTIPLE VIT [Concomitant]
  5. FISH OIL [Concomitant]
     Active Substance: FISH OIL
  6. NIACIN. [Concomitant]
     Active Substance: NIACIN
  7. FLONASE DENTAL RINSE [Concomitant]
  8. CALCIUM [Concomitant]
     Active Substance: CALCIUM
  9. COENZYME Q10 [Concomitant]
     Active Substance: DIETARY SUPPLEMENT\UBIDECARENONE
  10. VITAMIN D [Concomitant]
     Active Substance: VITAMIN D NOS
  11. FOLIC ACID. [Concomitant]
     Active Substance: FOLIC ACID

REACTIONS (2)
  - Allergic reaction to excipient [None]
  - Rash [None]

NARRATIVE: CASE EVENT DATE: 20210201
